FAERS Safety Report 17235533 (Version 1)
Quarter: 2020Q1

REPORT INFORMATION
  Report Type: Spontaneous
  Country: US (occurrence: US)
  Receive Date: 20200103
  Receipt Date: 20200103
  Transmission Date: 20200409
  Serious: Yes (Hospitalization)
  Sender: FDA-Public Use
  Company Number: None

PATIENT
  Age: 79 Year
  Sex: Male
  Weight: 105 kg

DRUGS (10)
  1. ATEZOLIZUMAB. [Suspect]
     Active Substance: ATEZOLIZUMAB
     Indication: SQUAMOUS CELL CARCINOMA
     Dosage: ?          OTHER FREQUENCY:ONCE OVER 30 MINUT;?
     Route: 042
     Dates: start: 20191216, end: 20191216
  2. ATENOLOL. [Concomitant]
     Active Substance: ATENOLOL
     Dates: start: 20190717
  3. GLIMEPIRIDE. [Concomitant]
     Active Substance: GLIMEPIRIDE
     Dates: start: 20190717
  4. COBIMETINIB. [Concomitant]
     Active Substance: COBIMETINIB
     Dates: start: 20191120
  5. LISINOPRIL. [Concomitant]
     Active Substance: LISINOPRIL
     Dates: start: 20190717
  6. METFORMIN [Concomitant]
     Active Substance: METFORMIN HYDROCHLORIDE
     Dates: start: 20190717
  7. PRAVASTATIN. [Concomitant]
     Active Substance: PRAVASTATIN
     Dates: start: 20190717
  8. AMLODIPINE [Concomitant]
     Active Substance: AMLODIPINE BESYLATE
     Dates: start: 20190717
  9. TIOTROPIUM [Concomitant]
     Active Substance: TIOTROPIUM
     Dates: start: 20190903
  10. LEVOTHYROXINE. [Concomitant]
     Active Substance: LEVOTHYROXINE
     Dates: start: 20190717

REACTIONS (4)
  - Cyanosis [None]
  - Dyspnoea [None]
  - Malaise [None]
  - Syncope [None]

NARRATIVE: CASE EVENT DATE: 20191216
